FAERS Safety Report 5169016-4 (Version None)
Quarter: 2006Q4

REPORT INFORMATION
  Report Type: 
  Country: None (occurrence: None)
  Receive Date: 20061211
  Receipt Date: 20050302
  Transmission Date: 20070319
  Serious: Yes (Hospitalization, Disabling, Other)
  Sender: FDA-Public Use
  Company Number: US-PURDUE-USA_2005_0019158

PATIENT
  Age: 0 None
  Sex: Female

DRUGS (3)
  1. OXYCONTIN [Suspect]
     Indication: PAIN
     Dosage: 80 MG, Q6H
  2. VICODIN [Concomitant]
     Dosage: UNK, SEE TEXT
  3. VALIUM [Concomitant]
     Dosage: 10 MG, TID

REACTIONS (7)
  - ACTIVITIES OF DAILY LIVING IMPAIRED [None]
  - DETOXIFICATION [None]
  - DRUG DEPENDENCE [None]
  - EUPHORIC MOOD [None]
  - GENERAL PHYSICAL HEALTH DETERIORATION [None]
  - OVERDOSE [None]
  - PAIN [None]
